FAERS Safety Report 9955777 (Version 1)
Quarter: 2014Q1

REPORT INFORMATION
  Report Type: Other
  Country: HK (occurrence: HK)
  Receive Date: 20140304
  Receipt Date: 20140304
  Transmission Date: 20141002
  Serious: Yes (Other)
  Sender: FDA-Public Use
  Company Number: HK-BRISTOL-MYERS SQUIBB COMPANY-20330726

PATIENT
  Age: 29 Year
  Sex: Female

DRUGS (2)
  1. WARFARIN SODIUM [Suspect]
     Dates: start: 2010
  2. HEPARIN [Suspect]
     Dosage: IUH INFUSION
     Route: 042

REACTIONS (1)
  - Splenic rupture [Recovered/Resolved]
